FAERS Safety Report 7995045-9 (Version None)
Quarter: 2011Q4

REPORT INFORMATION
  Report Type: 
  Country: None (occurrence: None)
  Receive Date: 20111220
  Receipt Date: 20111214
  Transmission Date: 20120403
  Serious: Yes (Death)
  Sender: FDA-Public Use
  Company Number: JP-PFIZER INC-2011304799

PATIENT
  Age: 91 Year
  Sex: Male

DRUGS (21)
  1. TIENAM [Concomitant]
     Dosage: UNK
     Route: 041
     Dates: start: 20111127
  2. TIENAM [Concomitant]
     Dosage: UNK
     Route: 041
     Dates: start: 20111204
  3. PIPERACILLIN SODIUM [Concomitant]
     Dosage: UNK
     Route: 041
     Dates: start: 20111127
  4. VANCOMYCIN [Concomitant]
     Dosage: 1 G DAILY
     Dates: start: 20111203, end: 20111206
  5. PENTAZOCINE LACTATE [Concomitant]
     Dosage: UNK
     Dates: start: 20111209
  6. ZYVOX [Suspect]
     Indication: PNEUMONIA STAPHYLOCOCCAL
     Dosage: UNK
     Route: 041
     Dates: start: 20111209, end: 20111210
  7. TIENAM [Concomitant]
     Dosage: UNK
     Route: 041
     Dates: start: 20111207
  8. TIENAM [Concomitant]
     Dosage: 1.5 G (0.5 G X 3 BOTTLES) DAILY
     Route: 041
     Dates: start: 20111209
  9. PAZUCROSS [Concomitant]
     Dosage: UNK
     Dates: start: 20111202
  10. FLUCONAZOLE [Concomitant]
     Dosage: 1 VIAL DAILY
     Route: 042
     Dates: start: 20111201
  11. VANCOMYCIN [Concomitant]
     Dosage: 1 G DAILY
     Dates: start: 20111202
  12. FLUCONAZOLE [Concomitant]
     Dosage: 2 VIALS DAILY
     Dates: start: 20111203
  13. VANCOMYCIN [Concomitant]
     Dosage: 1 G DAILY
     Dates: start: 20111201
  14. FLUCONAZOLE [Concomitant]
     Dosage: 1 VIAL DAILY
     Dates: start: 20111202
  15. DIAZEPAM [Concomitant]
     Dosage: UNK
     Dates: start: 20111209
  16. DIPRIVAN [Concomitant]
     Dosage: UNK
     Dates: start: 20111209
  17. PIPERACILLIN SODIUM [Concomitant]
     Dosage: UNK
     Route: 041
     Dates: start: 20111207
  18. PIPERACILLIN SODIUM [Concomitant]
     Dosage: 1 BOTTLE OF 0.5 G  DAILY
     Route: 041
     Dates: start: 20111209
  19. EXACIN [Concomitant]
     Dosage: 200 ML X 1DAILY
     Dates: start: 20111209
  20. PAZUCROSS [Concomitant]
     Dosage: 2 VIALS DAILY
     Dates: start: 20111203
  21. PAZUCROSS [Concomitant]
     Dosage: UNK
     Dates: start: 20111207

REACTIONS (1)
  - URINARY RETENTION [None]
